FAERS Safety Report 19942220 (Version 1)
Quarter: 2021Q4

REPORT INFORMATION
  Report Type: Spontaneous
  Country: US (occurrence: US)
  Receive Date: 20211012
  Receipt Date: 20211012
  Transmission Date: 20220303
  Serious: No
  Sender: FDA-Public Use
  Company Number: US-ELI_LILLY_AND_COMPANY-US202110004209

PATIENT
  Sex: Male

DRUGS (3)
  1. LYUMJEV KWIKPEN [Suspect]
     Active Substance: INSULIN LISPRO
     Indication: Type 2 diabetes mellitus
     Dosage: UNK UNK, UNKNOWN
     Route: 058
  2. BYDUREON [Concomitant]
     Active Substance: EXENATIDE
     Indication: Diabetes mellitus
  3. LANTUS [Concomitant]
     Active Substance: INSULIN GLARGINE
     Indication: Diabetes mellitus

REACTIONS (2)
  - Overweight [Unknown]
  - Hunger [Unknown]
